FAERS Safety Report 19860617 (Version 1)
Quarter: 2021Q3

REPORT INFORMATION
  Report Type: Spontaneous
  Country: CN (occurrence: CN)
  Receive Date: 20210921
  Receipt Date: 20210921
  Transmission Date: 20211014
  Serious: Yes (Other)
  Sender: FDA-Public Use
  Company Number: CN-LUPIN PHARMACEUTICALS INC.-2021-17776

PATIENT
  Age: 34 Year
  Sex: Female

DRUGS (7)
  1. AZITHROMYCIN ANHYDROUS. [Suspect]
     Active Substance: AZITHROMYCIN ANHYDROUS
     Indication: SEVERE ACUTE RESPIRATORY SYNDROME
     Dosage: 500 MILLIGRAM, QD
     Route: 048
     Dates: start: 20200126
  2. METHYLPREDNISOLONE. [Suspect]
     Active Substance: METHYLPREDNISOLONE
     Indication: COVID-19 PNEUMONIA
     Dosage: 20 MILLIGRAM, QD
     Route: 042
     Dates: start: 20200129
  3. CALAMINE [Suspect]
     Active Substance: CALAMINE\FERRIC OXIDE RED\ZINC OXIDE
     Indication: RASH
     Dosage: UNK
     Route: 061
     Dates: start: 20200125
  4. BECLOMETASONE [Suspect]
     Active Substance: BECLOMETHASONE DIPROPIONATE
     Indication: RASH
     Dosage: UNK
     Route: 061
     Dates: start: 20200123
  5. OSELTAMIVIR [Suspect]
     Active Substance: OSELTAMIVIR
     Indication: SEVERE ACUTE RESPIRATORY SYNDROME
     Dosage: 75 MILLIGRAM, BID
     Route: 048
     Dates: start: 20200126
  6. CEFACLOR. [Suspect]
     Active Substance: CEFACLOR
     Indication: ANTIBIOTIC THERAPY
     Dosage: 375 MILLIGRAM, BID
     Route: 048
     Dates: start: 202001
  7. METHYLPREDNISOLONE. [Suspect]
     Active Substance: METHYLPREDNISOLONE
     Dosage: 20 MILLIGRAM, QD
     Route: 042
     Dates: start: 20200129

REACTIONS (2)
  - Exposure during pregnancy [Unknown]
  - Off label use [Unknown]
